FAERS Safety Report 6583165-5 (Version None)
Quarter: 2010Q1

REPORT INFORMATION
  Report Type: 
  Country: None (occurrence: None)
  Receive Date: 20100216
  Receipt Date: 20100203
  Transmission Date: 20100710
  Serious: Yes (Other)
  Sender: FDA-Public Use
  Company Number: US-SANOFI-AVENTIS-2010SA002268

PATIENT
  Sex: Female
  Weight: 64 kg

DRUGS (1)
  1. DDAVP [Suspect]
     Indication: DIABETES INSIPIDUS
     Dosage: CAN'T FIND THE CORRECT DOSAGE (THIS IS THE PROBLEM); IT'S NOT A SPECIFIC BOTTLE.
     Route: 065
     Dates: start: 19891201

REACTIONS (4)
  - CONVULSION [None]
  - DRUG INEFFECTIVE [None]
  - DYSURIA [None]
  - OVERDOSE [None]
